FAERS Safety Report 8594927 (Version 2)
Quarter: 2014Q1

REPORT INFORMATION
  Report Type: Spontaneous
  Country: US (occurrence: US)
  Receive Date: 20120604
  Receipt Date: 20140305
  Transmission Date: 20141002
  Serious: No
  Sender: FDA-Public Use
  Company Number: US-ASTRAZENECA-2012SE32820

PATIENT
  Age: 60 Year
  Sex: Female
  Weight: 83 kg

DRUGS (10)
  1. NEXIUM [Suspect]
     Route: 048
     Dates: start: 2011, end: 2013
  2. NEXIUM [Suspect]
     Route: 048
     Dates: start: 2013
  3. NEXIUM [Suspect]
     Route: 048
  4. METFORMIN [Concomitant]
     Indication: DIABETES MELLITUS
  5. GLIMEPIRIDE [Concomitant]
     Indication: DIABETES MELLITUS
  6. GEMFIBROZIL [Concomitant]
     Indication: BLOOD CHOLESTEROL ABNORMAL
  7. HYDROCHLOROTHIAZIDE [Concomitant]
     Indication: DIURETIC THERAPY
  8. VITAMIN K [Concomitant]
     Indication: BLOOD POTASSIUM DECREASED
  9. LOSARTAN POTASSIUM [Concomitant]
     Indication: HYPERTENSION
  10. ROLAIDS [Concomitant]

REACTIONS (10)
  - Gastrooesophageal reflux disease [Not Recovered/Not Resolved]
  - Gastrooesophageal reflux disease [Unknown]
  - Hernia [Unknown]
  - Sleep disorder due to general medical condition, insomnia type [Unknown]
  - Dyspepsia [Unknown]
  - Body height decreased [Not Recovered/Not Resolved]
  - Diabetes mellitus [Unknown]
  - Malaise [Not Recovered/Not Resolved]
  - Drug dose omission [Recovered/Resolved]
  - Intentional drug misuse [Not Recovered/Not Resolved]
